FAERS Safety Report 8639663 (Version 3)
Quarter: 2014Q1

REPORT INFORMATION
  Report Type: Spontaneous
  Country: US (occurrence: None)
  Receive Date: 20120323
  Receipt Date: 20140306
  Transmission Date: 20141002
  Serious: Yes (Hospitalization)
  Sender: FDA-Public Use
  Company Number: 163-21880-11091723

PATIENT
  Age: 66 Year
  Sex: Female

DRUGS (8)
  1. REVLIMID (LENALIDOMIDE) (CAPSULES) [Suspect]
     Indication: PLASMA CELL MYELOMA
     Dosage: 25 MG, 21 IN  21 DAYS, PO
     Route: 048
     Dates: start: 20110815, end: 20110910
  2. PREMARIN [Suspect]
     Indication: PRODUCT USED FOR UNKNOWN INDICATION
     Dosage: 25 MG, DAILY X 21 DAYS, PO
     Route: 048
  3. DECADRON [Concomitant]
  4. BIOTIN [Concomitant]
  5. CALCIUM WITH VITAMIN D [Concomitant]
  6. VITAMIN D (ERGOCALCIFEROL) [Concomitant]
  7. COMPLETE MULTIVITAMIN (MULTIVITAMINS) [Concomitant]
  8. PAMIDRONATE (PAMIDRONATE DISODIUM) [Concomitant]

REACTIONS (4)
  - Venous thrombosis limb [None]
  - Pulmonary embolism [None]
  - Rash [None]
  - Pruritus [None]
